FAERS Safety Report 9449263 (Version 1)
Quarter: 2013Q3

REPORT INFORMATION
  Report Type: Spontaneous
  Country: FR (occurrence: FR)
  Receive Date: 20130808
  Receipt Date: 20130808
  Transmission Date: 20140515
  Serious: Yes (Hospitalization)
  Sender: FDA-Public Use
  Company Number: FR-GLAXOSMITHKLINE-B0912505A

PATIENT
  Age: 53 Year
  Sex: Male

DRUGS (2)
  1. ARIXTRA [Suspect]
     Indication: PULMONARY EMBOLISM
     Dosage: 7.5MG UNKNOWN
     Route: 065
     Dates: end: 20130421
  2. INEXIUM [Concomitant]
     Dosage: 40MG PER DAY

REACTIONS (6)
  - Haematemesis [Recovering/Resolving]
  - Melaena [Recovering/Resolving]
  - Skin lesion [Recovering/Resolving]
  - Ecchymosis [Unknown]
  - Petechiae [Unknown]
  - Incorrect drug administration duration [Unknown]
